FAERS Safety Report 17444213 (Version 1)
Quarter: 2020Q1

REPORT INFORMATION
  Report Type: Spontaneous
  Country: US (occurrence: US)
  Receive Date: 20200207
  Receipt Date: 20200207
  Transmission Date: 20200409
  Serious: No
  Sender: FDA-Public Use
  Company Number: None

PATIENT
  Sex: Female

DRUGS (4)
  1. LEVOTHYROXINE. [Concomitant]
     Active Substance: LEVOTHYROXINE
  2. GLEEVEC [Suspect]
     Active Substance: IMATINIB MESYLATE
     Route: 048
     Dates: start: 20191007
  3. FUROSEMIDE. [Concomitant]
     Active Substance: FUROSEMIDE
  4. METFORMIN [Concomitant]
     Active Substance: METFORMIN HYDROCHLORIDE

REACTIONS (1)
  - Diarrhoea [None]
